FAERS Safety Report 13194721 (Version 1)
Quarter: 2017Q1

REPORT INFORMATION
  Report Type: Spontaneous
  Country: US (occurrence: US)
  Receive Date: 20170207
  Receipt Date: 20170207
  Transmission Date: 20170428
  Serious: No
  Sender: FDA-Public Use
  Company Number: US-JAZZ-2016-US-022569

PATIENT
  Sex: Male

DRUGS (4)
  1. PRIALT [Suspect]
     Active Substance: ZICONOTIDE ACETATE
     Indication: PRODUCT USED FOR UNKNOWN INDICATION
     Dosage: UNK ?G, QH
     Route: 037
  2. BUPIVICAINE [Suspect]
     Active Substance: BUPIVACAINE
     Dosage: UNK MG, QH
     Route: 037
     Dates: start: 20160107, end: 20160111
  3. GABAPENTINE [Concomitant]
     Active Substance: GABAPENTIN
     Indication: PRODUCT USED FOR UNKNOWN INDICATION
     Dosage: UNK
     Dates: start: 20160209
  4. BUPIVICAINE [Suspect]
     Active Substance: BUPIVACAINE
     Indication: PRODUCT USED FOR UNKNOWN INDICATION
     Dosage: UNK MG, QH
     Route: 037

REACTIONS (6)
  - Memory impairment [Unknown]
  - Gait disturbance [Unknown]
  - Malaise [Unknown]
  - Pain [Unknown]
  - Bedridden [Unknown]
  - Device issue [Unknown]

NARRATIVE: CASE EVENT DATE: 20150319
